FAERS Safety Report 9090549 (Version 1)
Quarter: 2013Q1

REPORT INFORMATION
  Report Type: Spontaneous
  Country: US (occurrence: US)
  Receive Date: 20130131
  Receipt Date: 20130131
  Transmission Date: 20140127
  Serious: Yes (Other)
  Sender: FDA-Public Use
  Company Number: US-009507513-1301USA014242

PATIENT
  Sex: Male

DRUGS (11)
  1. SINGULAIR [Suspect]
  2. IBUPROFEN [Concomitant]
  3. HYDROXYZINE [Concomitant]
  4. FEXOFENADINE [Concomitant]
  5. NABUMETONE [Concomitant]
  6. METAXALONE [Concomitant]
  7. CARISOPRODOL [Concomitant]
  8. HEMP [Concomitant]
  9. [COMPOSITION UNSPECIFIED] [Concomitant]
  10. ALCOHOL [Concomitant]
  11. ESOMEPRAZOLE [Concomitant]

REACTIONS (1)
  - Suicide attempt [Unknown]
